FAERS Safety Report 12817970 (Version 1)
Quarter: 2016Q4

REPORT INFORMATION
  Report Type: Spontaneous
  Country: JP (occurrence: JP)
  Receive Date: 20161005
  Receipt Date: 20161005
  Transmission Date: 20170207
  Serious: Yes (Hospitalization)
  Sender: FDA-Public Use
  Company Number: JP-ELI_LILLY_AND_COMPANY-JP201609009047

PATIENT
  Age: 28 Year
  Sex: Female

DRUGS (7)
  1. ZYPREXA [Suspect]
     Active Substance: OLANZAPINE
     Indication: PSYCHOTIC DISORDER
     Dosage: 5 MG, QD
     Route: 048
  2. ZYPREXA [Suspect]
     Active Substance: OLANZAPINE
     Dosage: 10 MG, QD
     Route: 048
  3. RISPERIDONE. [Concomitant]
     Active Substance: RISPERIDONE
     Dosage: UNK
  4. ZYPREXA [Suspect]
     Active Substance: OLANZAPINE
     Dosage: 20 MG, QD
     Route: 048
  5. ZYPREXA [Suspect]
     Active Substance: OLANZAPINE
     Dosage: 2.5MG FOR A FEW DAYS
     Route: 048
  6. ZYPREXA [Suspect]
     Active Substance: OLANZAPINE
     Dosage: 2.5MG FOR A 3-4 DAYS
     Route: 048
  7. ZYPREXA [Suspect]
     Active Substance: OLANZAPINE
     Dosage: 5 MG, QD
     Route: 048

REACTIONS (6)
  - Maternal exposure during pregnancy [Recovered/Resolved]
  - Feeling abnormal [Unknown]
  - Off label use [Unknown]
  - Confusional state [Recovered/Resolved]
  - Hyperprolactinaemia [Unknown]
  - Amenorrhoea [Unknown]
